FAERS Safety Report 5243951-0 (Version None)
Quarter: 2007Q1

REPORT INFORMATION
  Report Type: 
  Country: None (occurrence: None)
  Receive Date: 20070220
  Receipt Date: 20070220
  Transmission Date: 20070707
  Serious: Yes (Life-Threatening, Hospitalization)
  Sender: FDA-Public Use
  Company Number: None

PATIENT
  Sex: Female
  Weight: 96.1626 kg

DRUGS (1)
  1. ARAVA [Suspect]
     Indication: RHEUMATOID ARTHRITIS
     Dosage: 20MG DAILY PO
     Route: 048
     Dates: start: 20061201, end: 20070101

REACTIONS (4)
  - ACIDOSIS [None]
  - DEHYDRATION [None]
  - PANCREATITIS ACUTE [None]
  - RENAL FAILURE [None]
